FAERS Safety Report 7085283-4 (Version None)
Quarter: 2010Q4

REPORT INFORMATION
  Report Type: 
  Country: None (occurrence: None)
  Receive Date: 20101105
  Receipt Date: 20101029
  Transmission Date: 20110411
  Serious: Yes (Other)
  Sender: FDA-Public Use
  Company Number: CA-PFIZER INC-2010102516

PATIENT
  Age: 77 Year
  Sex: Male

DRUGS (12)
  1. VIAGRA [Suspect]
     Dosage: 100 MG, UNK
  2. ALLOPURINOL [Concomitant]
     Dosage: UNK
  3. DIVALPROEX SODIUM [Concomitant]
     Dosage: UNK
  4. BUPROPION [Concomitant]
     Dosage: UNK
  5. ANDRIOL [Concomitant]
     Dosage: UNK
  6. GALANTAMINE [Concomitant]
     Dosage: UNK
  7. FERROUS GLUCONATE [Concomitant]
     Dosage: UNK
  8. ASPIRIN [Concomitant]
     Dosage: UNK
  9. FOLIC ACID [Concomitant]
     Dosage: UNK
  10. VITAMIN A [Concomitant]
     Dosage: UNK
  11. CALCIUM CITRATE/MAGNESIUM CITRATE [Concomitant]
     Dosage: UNK
  12. VITAMIN D [Concomitant]
     Dosage: UNK

REACTIONS (4)
  - DEMENTIA ALZHEIMER'S TYPE [None]
  - DRUG INEFFECTIVE [None]
  - DYSPEPSIA [None]
  - NERVOUS SYSTEM DISORDER [None]
